FAERS Safety Report 9753874 (Version 2)
Quarter: 2014Q2

REPORT INFORMATION
  Report Type: Spontaneous
  Country: US (occurrence: None)
  Receive Date: 20131211
  Receipt Date: 20140424
  Transmission Date: 20141212
  Serious: Yes (Other)
  Sender: FDA-Public Use
  Company Number: AUR-APL-2013-10388

PATIENT
  Age: 64 Year
  Sex: Female
  Weight: 92.97 kg

DRUGS (5)
  1. METFORMIN [Suspect]
     Indication: DIABETES MELLITUS
     Dosage: 1000 MG (500 MG, 2 IN 1 D), UNKOWN
  2. LYRICA (PREGABALIN) [Suspect]
     Indication: FIBROMYALGIA
     Dosage: 300 MG (100 MG, 3 IN 1 D), UNKNOWN
  3. METOPROLOL [Concomitant]
  4. FLEXERIL (CYCLOBENZAPRINE HYDROCHLORIDE) [Concomitant]
  5. VICTOZA (LIRAGLUTIDE) [Suspect]
     Indication: DIABETES MELLITUS

REACTIONS (4)
  - Drug intolerance [None]
  - Diabetes mellitus [None]
  - Weight fluctuation [None]
  - Glycosylated haemoglobin increased [None]
